FAERS Safety Report 18266581 (Version 3)
Quarter: 2022Q3

REPORT INFORMATION
  Report Type: Spontaneous
  Country: US (occurrence: US)
  Receive Date: 20200915
  Receipt Date: 20220809
  Transmission Date: 20221027
  Serious: Yes (Other)
  Sender: FDA-Public Use
  Company Number: US-SAARTEMIS-SAC202009110194

PATIENT
  Age: 38 Year
  Sex: Male

DRUGS (1)
  1. ZANTAC [Suspect]
     Active Substance: RANITIDINE HYDROCHLORIDE
     Indication: Gastrooesophageal reflux disease
     Dosage: 150 MG, FREQUENCY: OTHER
     Route: 065
     Dates: start: 201203, end: 201501

REACTIONS (1)
  - Non-Hodgkin^s lymphoma stage IV [Unknown]
